FAERS Safety Report 7388554-7 (Version None)
Quarter: 2011Q2

REPORT INFORMATION
  Report Type: 
  Country: None (occurrence: None)
  Receive Date: 20110401
  Receipt Date: 20110330
  Transmission Date: 20111010
  Serious: Yes (Other)
  Sender: FDA-Public Use
  Company Number: US-PFIZER INC-2011071878

PATIENT
  Sex: Female
  Weight: 72.5 kg

DRUGS (4)
  1. BUSPAR [Concomitant]
     Dosage: UNK
     Route: 048
  2. ACETAMINOPHEN [Concomitant]
     Indication: MIGRAINE
     Dosage: UNK
     Route: 048
  3. GEODON [Suspect]
     Indication: SEDATION
     Dosage: 80 MG, 2X/DAY
     Route: 048
     Dates: start: 20080101
  4. DILANTIN [Suspect]
     Indication: EPILEPSY
     Dosage: 100 MG, 4X/DAY
     Route: 048
     Dates: start: 20100901

REACTIONS (2)
  - EPILEPSY [None]
  - DRUG ADMINISTRATION ERROR [None]
